FAERS Safety Report 16610503 (Version 1)
Quarter: 2019Q3

REPORT INFORMATION
  Report Type: Other
  Country: US (occurrence: US)
  Receive Date: 20190722
  Receipt Date: 20190722
  Transmission Date: 20191004
  Serious: Yes (Other)
  Sender: FDA-Public Use
  Company Number: US-OSMOTICA_PHARMACEUTICAL_US_LLC-POI0573201800215

PATIENT
  Age: 59 Year
  Sex: Female
  Weight: 100.24 kg

DRUGS (8)
  1. CEVIMELINE. [Concomitant]
     Active Substance: CEVIMELINE
     Indication: SJOGREN^S SYNDROME
     Dates: start: 2011
  2. XELJANZ [Suspect]
     Active Substance: TOFACITINIB CITRATE
     Indication: RHEUMATOID ARTHRITIS
     Dates: start: 201511, end: 20170726
  3. DIVIGEL [Suspect]
     Active Substance: ESTRADIOL
     Indication: HORMONE REPLACEMENT THERAPY
     Route: 062
     Dates: start: 2011, end: 201707
  4. BUPROPION. [Concomitant]
     Active Substance: BUPROPION
     Indication: ANXIETY
  5. PROGESTERONE. [Suspect]
     Active Substance: PROGESTERONE
     Dates: start: 2017, end: 201707
  6. PROGESTERONE. [Suspect]
     Active Substance: PROGESTERONE
     Indication: HORMONE REPLACEMENT THERAPY
     Dates: start: 2011, end: 2017
  7. PRAVASTATIN. [Concomitant]
     Active Substance: PRAVASTATIN
     Indication: BLOOD CHOLESTEROL
  8. CANDESARTAN. [Concomitant]
     Active Substance: CANDESARTAN
     Indication: HYPERTENSION

REACTIONS (1)
  - Breast cancer [Unknown]

NARRATIVE: CASE EVENT DATE: 20170719
